FAERS Safety Report 17254151 (Version 4)
Quarter: 2020Q4

REPORT INFORMATION
  Report Type: Report from Study
  Country: US (occurrence: US)
  Receive Date: 20200109
  Receipt Date: 20201021
  Transmission Date: 20210113
  Serious: Yes (Other)
  Sender: FDA-Public Use
  Company Number: NVSC2020US002963

PATIENT
  Age: 32 Year
  Sex: Female
  Weight: 61 kg

DRUGS (3)
  1. GILENYA [Suspect]
     Active Substance: FINGOLIMOD HYDROCHLORIDE
     Dosage: 0.5 MG, QD
     Route: 048
     Dates: end: 20200915
  2. GILENYA [Suspect]
     Active Substance: FINGOLIMOD HYDROCHLORIDE
     Indication: MULTIPLE SCLEROSIS
     Dosage: 0.5 MG, QD
     Route: 048
  3. GILENYA [Suspect]
     Active Substance: FINGOLIMOD HYDROCHLORIDE
     Dosage: 0.5 MG, QD
     Route: 048
     Dates: start: 20191210

REACTIONS (13)
  - Memory impairment [Unknown]
  - Middle insomnia [Unknown]
  - Vision blurred [Unknown]
  - Multiple sclerosis [Unknown]
  - Arthralgia [Unknown]
  - Depression [Unknown]
  - Eye disorder [Unknown]
  - Pain [Recovering/Resolving]
  - Feeling abnormal [Unknown]
  - Product dose omission issue [Unknown]
  - Headache [Unknown]
  - Poor quality sleep [Unknown]
  - Influenza like illness [Unknown]

NARRATIVE: CASE EVENT DATE: 20200107
